FAERS Safety Report 21652462 (Version 2)
Quarter: 2022Q4

REPORT INFORMATION
  Report Type: Spontaneous
  Country: RO (occurrence: RO)
  Receive Date: 20221128
  Receipt Date: 20221220
  Transmission Date: 20230112
  Serious: Yes (Other)
  Sender: FDA-Public Use
  Company Number: RO-SLAVIA-INDAPAMID_2018_03

PATIENT
  Age: 42 Year
  Sex: Female

DRUGS (8)
  1. AMLODIPINE [Suspect]
     Active Substance: AMLODIPINE BESYLATE
     Indication: Hypertension
     Dosage: 20 MILLIGRAM, QD
     Route: 065
  2. ZOFENOPRIL [Suspect]
     Active Substance: ZOFENOPRIL
     Indication: Hypertension
     Dosage: 30 MILLIGRAM
     Route: 065
  3. INDAPAMIDE [Suspect]
     Active Substance: INDAPAMIDE
     Indication: Hypertension
     Dosage: 1.5 MG, DAILY
     Route: 065
  4. BETAXOLOL [Suspect]
     Active Substance: BETAXOLOL
     Indication: Hypertension
     Dosage: 10 MILLIGRAM, QD
     Route: 065
  5. RILMENIDINE [Suspect]
     Active Substance: RILMENIDINE
     Indication: Hypertension
     Dosage: 1 DOSAGE FORM, QD, 1CP, DAILY
     Route: 065
  6. RILMENIDINE [Suspect]
     Active Substance: RILMENIDINE
     Indication: Hypertension
     Dosage: 1 UNK, QD
     Route: 065
  7. HYDROCHLOROTHIAZIDE\ZOFENOPRIL CALCIUM [Suspect]
     Active Substance: HYDROCHLOROTHIAZIDE\ZOFENOPRIL CALCIUM
     Indication: Hypertension
     Dosage: 30 MILLIGRAM, QD, 30 MG, DAILY
     Route: 065
  8. HYDROCHLOROTHIAZIDE [Suspect]
     Active Substance: HYDROCHLOROTHIAZIDE
     Indication: Hypertension
     Dosage: 30 MILLIGRAM, QD
     Route: 065

REACTIONS (10)
  - Blood pressure increased [Unknown]
  - Vascular resistance systemic [Recovered/Resolved]
  - Multiple-drug resistance [Recovered/Resolved]
  - Blood pressure inadequately controlled [Unknown]
  - Snoring [Recovered/Resolved]
  - Paraesthesia [Recovered/Resolved]
  - Dyspnoea [Recovered/Resolved]
  - Somnolence [Recovered/Resolved]
  - Insomnia [Recovered/Resolved]
  - Drug ineffective [Unknown]
